FAERS Safety Report 26159948 (Version 1)
Quarter: 2025Q4

REPORT INFORMATION
  Report Type: Spontaneous
  Country: US (occurrence: US)
  Receive Date: 20251216
  Receipt Date: 20251216
  Transmission Date: 20260118
  Serious: No
  Sender: TOLMAR
  Company Number: US-Tolmar-TLM-2025-09312

PATIENT

DRUGS (2)
  1. ELIGARD [Suspect]
     Active Substance: LEUPROLIDE ACETATE
     Indication: Prostate cancer
     Dosage: NOT ADMINISTERED?BOX LOT: 15498CUS, EXP: 30-APR-2027.?SERIAL: 3018371268707.?GTIN: 00362935227106.?S
  2. DEVICE [Suspect]
     Active Substance: DEVICE
     Indication: Prostate cancer
     Dosage: BOX LOT: 15498CUS, EXP: 30-APR-2027.?SERIAL: 3018371268707.?GTIN: 00362935227106.?SYRINGE A LOT: 154

REACTIONS (3)
  - Intercepted product preparation error [Unknown]
  - Device connection issue [Unknown]
  - Device leakage [Unknown]
